FAERS Safety Report 15280646 (Version 1)
Quarter: 2018Q3

REPORT INFORMATION
  Report Type: Spontaneous
  Country: IE (occurrence: IE)
  Receive Date: 20180815
  Receipt Date: 20180815
  Transmission Date: 20181010
  Serious: Yes (Life-Threatening, Other)
  Sender: FDA-Public Use
  Company Number: IE-SA-2018SA157315

PATIENT

DRUGS (2)
  1. DRONEDARONE [Suspect]
     Active Substance: DRONEDARONE
     Dosage: UNK UNK, UNK
     Route: 065
  2. XARELTO [Suspect]
     Active Substance: RIVAROXABAN
     Dosage: UNK, UNK
     Route: 065

REACTIONS (1)
  - Gastrointestinal haemorrhage [Unknown]
